FAERS Safety Report 21962303 (Version 1)
Quarter: 2023Q1

REPORT INFORMATION
  Report Type: Spontaneous
  Country: US (occurrence: US)
  Receive Date: 20230207
  Receipt Date: 20230207
  Transmission Date: 20230418
  Serious: No
  Sender: FDA-Public Use
  Company Number: US-PFIZER INC-PV202300001491

PATIENT
  Age: 64 Year
  Sex: Male
  Weight: 111.13 kg

DRUGS (2)
  1. BRAFTOVI [Suspect]
     Active Substance: ENCORAFENIB
     Indication: Colon cancer
     Dosage: 300 MG
  2. BRAFTOVI [Suspect]
     Active Substance: ENCORAFENIB
     Indication: Hepatic cancer
     Dosage: 75 MG, 4X/DAY
     Dates: start: 2022

REACTIONS (6)
  - Product dose omission issue [Unknown]
  - Off label use [Unknown]
  - Drug effective for unapproved indication [Unknown]
  - Hernia [Unknown]
  - Weight decreased [Unknown]
  - Condition aggravated [Unknown]

NARRATIVE: CASE EVENT DATE: 20221201
